FAERS Safety Report 11075002 (Version 1)
Quarter: 2015Q2

REPORT INFORMATION
  Report Type: Spontaneous
  Country: CR (occurrence: CR)
  Receive Date: 20150429
  Receipt Date: 20150429
  Transmission Date: 20150821
  Serious: No
  Sender: FDA-Public Use
  Company Number: CR-JNJFOC-20150415188

PATIENT
  Sex: Female

DRUGS (1)
  1. DUROGESIC [Suspect]
     Active Substance: FENTANYL
     Indication: BACK INJURY
     Route: 062

REACTIONS (3)
  - Overdose [Unknown]
  - Wrong technique in drug usage process [Unknown]
  - Product quality issue [Unknown]
